FAERS Safety Report 18094303 (Version 3)
Quarter: 2021Q1

REPORT INFORMATION
  Report Type: Report from Study
  Country: None (occurrence: US)
  Receive Date: 20200730
  Receipt Date: 20210214
  Transmission Date: 20210419
  Serious: Yes (Hospitalization, Other)
  Sender: FDA-Public Use
  Company Number: US-ABBVIE-20K-163-3502851-00

PATIENT
  Age: 71 Year
  Sex: Female
  Weight: 104.42 kg

DRUGS (1)
  1. SKYRIZI [Suspect]
     Active Substance: RISANKIZUMAB-RZAA
     Indication: PSORIASIS
     Route: 058
     Dates: start: 20200507, end: 20200606

REACTIONS (1)
  - Plasma cell myeloma [Recovering/Resolving]

NARRATIVE: CASE EVENT DATE: 20200712
